FAERS Safety Report 8105832-4 (Version None)
Quarter: 2012Q1

REPORT INFORMATION
  Report Type: 
  Country: None (occurrence: None)
  Receive Date: 20120201
  Receipt Date: 20120123
  Transmission Date: 20120608
  Serious: Yes (Other)
  Sender: FDA-Public Use
  Company Number: AR-AMGEN-ARGSP2011017058

PATIENT
  Age: 66 Year
  Sex: Female
  Weight: 67 kg

DRUGS (3)
  1. ENBREL [Suspect]
     Indication: RHEUMATOID ARTHRITIS
     Dosage: 50 MG, WEEKLY
     Route: 058
     Dates: start: 20080103, end: 20100901
  2. ALPRAZOLAM [Concomitant]
     Dosage: UNK
     Route: 048
     Dates: end: 20110301
  3. ENALAPRIL MALEATE [Concomitant]
     Dosage: UNK
     Route: 048

REACTIONS (4)
  - ARTHRALGIA [None]
  - HYPERTENSIVE CRISIS [None]
  - BLOOD PRESSURE ABNORMAL [None]
  - CARDIOMEGALY [None]
